FAERS Safety Report 5172278-0 (Version None)
Quarter: 2006Q4

REPORT INFORMATION
  Report Type: 
  Country: None (occurrence: None)
  Receive Date: 20061213
  Receipt Date: 20060726
  Transmission Date: 20070319
  Serious: Yes (Hospitalization)
  Sender: FDA-Public Use
  Company Number: HQWYE434127JUL06

PATIENT
  Sex: Female
  Weight: 36 kg

DRUGS (19)
  1. ENBREL [Suspect]
     Indication: RHEUMATOID ARTHRITIS
     Route: 058
     Dates: start: 20050309, end: 20060921
  2. PREDNISOLONE [Suspect]
     Indication: RHEUMATOID ARTHRITIS
     Route: 048
  3. GASTER [Concomitant]
     Indication: PROPHYLAXIS AGAINST GASTROINTESTINAL ULCER
     Route: 065
  4. BUFFERIN [Concomitant]
     Indication: PROPHYLAXIS
     Route: 048
  5. LIVALO [Concomitant]
     Indication: HYPERLIPIDAEMIA
     Route: 048
  6. NU-LOTAN [Concomitant]
     Indication: HYPERTENSION
     Route: 048
  7. BENET [Concomitant]
     Indication: OSTEOPOROSIS
     Route: 048
  8. FERROMIA [Concomitant]
     Route: 065
  9. MEVALOTIN [Concomitant]
     Route: 065
  10. NEUQUINON [Concomitant]
     Route: 065
  11. DOXAZOSIN MESYLATE [Concomitant]
     Route: 065
  12. FLURBIPROFEN [Concomitant]
     Route: 065
  13. BROTIZOLAM [Concomitant]
     Route: 065
  14. LOXOPROFEN SODIUM [Concomitant]
     Indication: RHEUMATOID ARTHRITIS
     Route: 065
  15. SELBEX [Concomitant]
     Route: 065
  16. ALLEGRA [Concomitant]
     Route: 065
  17. EURAX H [Concomitant]
     Route: 065
  18. BLOPRESS [Concomitant]
     Route: 065
  19. AZULFIDINE [Concomitant]
     Indication: RHEUMATOID ARTHRITIS
     Route: 065
     Dates: start: 20051026, end: 20060515

REACTIONS (4)
  - BLOOD BETA-D-GLUCAN INCREASED [None]
  - BLOOD POTASSIUM INCREASED [None]
  - PNEUMOCYSTIS JIROVECI PNEUMONIA [None]
  - PNEUMONIA [None]
